FAERS Safety Report 8261352-8 (Version None)
Quarter: 2012Q2

REPORT INFORMATION
  Report Type: 
  Country: None (occurrence: None)
  Receive Date: 20120405
  Receipt Date: 20120329
  Transmission Date: 20120825
  Serious: Yes (Hospitalization)
  Sender: FDA-Public Use
  Company Number: US-PFIZER INC-2012081761

PATIENT
  Sex: Male

DRUGS (1)
  1. VIAGRA [Suspect]
     Dosage: 50 MG, UNK

REACTIONS (8)
  - CARDIOMEGALY [None]
  - FATIGUE [None]
  - INSOMNIA [None]
  - STERNOTOMY [None]
  - INFECTION [None]
  - CHEST PAIN [None]
  - CARDIAC DISORDER [None]
  - DEVICE RELATED INFECTION [None]
